FAERS Safety Report 7570288-7 (Version None)
Quarter: 2011Q2

REPORT INFORMATION
  Report Type: 
  Country: None (occurrence: None)
  Receive Date: 20110620
  Receipt Date: 20110609
  Transmission Date: 20111010
  Serious: Yes (Death)
  Sender: FDA-Public Use
  Company Number: UTC-007793

PATIENT
  Age: 78 Year
  Sex: Female

DRUGS (1)
  1. TYVASO [Suspect]
     Indication: PULMONARY ARTERIAL HYPERTENSION
     Dosage: 96 MCG (24 MCG,4 IN 1 D),INHALATION
     Route: 055
     Dates: start: 20110501, end: 20110601

REACTIONS (1)
  - DEATH [None]
